FAERS Safety Report 4437477-1 (Version None)
Quarter: 2004Q3

REPORT INFORMATION
  Report Type: 
  Country: None (occurrence: None)
  Receive Date: 20040827
  Receipt Date: 20040819
  Transmission Date: 20050211
  Serious: Yes (Hospitalization)
  Sender: FDA-Public Use
  Company Number: HQWYE474220AUG04

PATIENT
  Age: 58 Year
  Sex: Female

DRUGS (7)
  1. NEORAL [Suspect]
     Indication: PROPHYLAXIS AGAINST TRANSPLANT REJECTION
     Dosage: 125 MG 2X PER 1 DAY
     Dates: start: 20031118
  2. FUROSEMIDE [Concomitant]
  3. POTASSIUM CHLORIDE [Concomitant]
  4. FELODIPINE [Concomitant]
  5. CELLCEPT [Concomitant]
  6. PREDNISOLONE [Concomitant]
  7. GLUCAGON [Concomitant]

REACTIONS (3)
  - HEPATIC CIRRHOSIS [None]
  - HEPATIC STEATOSIS [None]
  - LIPASE INCREASED [None]
